FAERS Safety Report 5117790-5 (Version None)
Quarter: 2006Q3

REPORT INFORMATION
  Report Type: 
  Country: None (occurrence: None)
  Receive Date: 20060928
  Receipt Date: 20060928
  Transmission Date: 20061208
  Serious: Yes (Life-Threatening, Hospitalization)
  Sender: FDA-Public Use
  Company Number: None

PATIENT
  Age: 49 Year
  Sex: Male
  Weight: 89 kg

DRUGS (13)
  1. HEPARIN [Suspect]
     Dosage: ONCE
     Dates: start: 20050324, end: 20050324
  2. SILDENAFIL [Concomitant]
  3. TERAZOSIN HCL [Concomitant]
  4. NIFEDIPINE [Concomitant]
  5. METOPROLOL TARTRATE [Concomitant]
  6. INSULIN [Concomitant]
  7. FUROSEMIDE [Concomitant]
  8. COLCHICINE [Concomitant]
  9. ASPIRIN [Concomitant]
  10. ALLOPURINOL [Concomitant]
  11. POTASSIUM CHLORIDE [Concomitant]
  12. OMEPRAZOLE [Concomitant]
  13. CALCIUM CARBONATE [Concomitant]

REACTIONS (3)
  - CATHETER SITE HAEMORRHAGE [None]
  - HAEMATOCRIT DECREASED [None]
  - HAEMOGLOBIN DECREASED [None]
